FAERS Safety Report 26037435 (Version 1)
Quarter: 2025Q4

REPORT INFORMATION
  Report Type: Spontaneous
  Country: US (occurrence: US)
  Receive Date: 20251112
  Receipt Date: 20251112
  Transmission Date: 20260118
  Serious: Yes (Other)
  Sender: ABBVIE
  Company Number: US-ABBVIE-6544491

PATIENT
  Age: 87 Year
  Sex: Male

DRUGS (1)
  1. LUMIGAN [Suspect]
     Active Substance: BIMATOPROST
     Indication: Intraocular pressure increased
     Dosage: OPTHALMIC
     Route: 065

REACTIONS (6)
  - Blindness [Unknown]
  - Ocular hyperaemia [Unknown]
  - Eye disorder [Unknown]
  - Eye pruritus [Unknown]
  - Eye pain [Unknown]
  - Skin exfoliation [Unknown]

NARRATIVE: CASE EVENT DATE: 20250801
